FAERS Safety Report 6243561-2 (Version None)
Quarter: 2009Q2

REPORT INFORMATION
  Report Type: 
  Country: None (occurrence: None)
  Receive Date: 20090624
  Receipt Date: 20090615
  Transmission Date: 20091009
  Serious: Yes (Other)
  Sender: FDA-Public Use
  Company Number: FR-GENENTECH-285389

PATIENT

DRUGS (2)
  1. AVASTIN [Suspect]
     Indication: RENAL CANCER METASTATIC
     Route: 065
  2. TAXOL [Suspect]
     Indication: RENAL CANCER METASTATIC
     Route: 065

REACTIONS (1)
  - LUNG DISORDER [None]
